FAERS Safety Report 4898757-9 (Version None)
Quarter: 2006Q1

REPORT INFORMATION
  Report Type: 
  Country: None (occurrence: None)
  Receive Date: 20060131
  Receipt Date: 20060118
  Transmission Date: 20060701
  Serious: Yes (Other)
  Sender: FDA-Public Use
  Company Number: 2006009328

PATIENT
  Age: 57 Year
  Sex: Female

DRUGS (2)
  1. CHLORPHENIRAMINE, D-PSEUDOEPHEDRINE (PSEUDOEPHEDRINE, CHLORPHENIRAMINE [Suspect]
     Dosage: ORAL
     Route: 048
  2. CONJUGATED ESTROGENS [Concomitant]

REACTIONS (3)
  - DRUG ERUPTION [None]
  - PAIN [None]
  - UPPER RESPIRATORY TRACT INFECTION [None]
